FAERS Safety Report 18479928 (Version 2)
Quarter: 2020Q4

REPORT INFORMATION
  Report Type: Spontaneous
  Country: US (occurrence: US)
  Receive Date: 20201109
  Receipt Date: 20201111
  Transmission Date: 20210114
  Serious: Yes (Life-Threatening, Hospitalization, Disabling, Other)
  Sender: FDA-Public Use
  Company Number: US-GLAXOSMITHKLINE-US2020AMR220458

PATIENT
  Age: 50 Year
  Sex: Male

DRUGS (1)
  1. LAMICTAL [Suspect]
     Active Substance: LAMOTRIGINE
     Indication: EPILEPSY
     Dosage: UNK
     Dates: start: 2018

REACTIONS (15)
  - Feeling abnormal [Unknown]
  - Immunodeficiency common variable [Unknown]
  - Hospitalisation [Unknown]
  - Blood immunoglobulin G decreased [Unknown]
  - Erythema [Unknown]
  - Pustule [Unknown]
  - Near death experience [Unknown]
  - Malaise [Unknown]
  - Lung disorder [Unknown]
  - Illness [Unknown]
  - Rash pustular [Unknown]
  - Epilepsy [Unknown]
  - Alopecia universalis [Unknown]
  - Nonspecific reaction [Unknown]
  - Onychoclasis [Unknown]

NARRATIVE: CASE EVENT DATE: 2018
